FAERS Safety Report 12506219 (Version 3)
Quarter: 2016Q3

REPORT INFORMATION
  Report Type: Report from Study
  Country: TW (occurrence: TW)
  Receive Date: 20160628
  Receipt Date: 20160805
  Transmission Date: 20161109
  Serious: Yes (Hospitalization, Other)
  Sender: FDA-Public Use
  Company Number: TW-ABBVIE-16K-153-1658851-00

PATIENT
  Age: 45 Year
  Sex: Male
  Weight: 72.5 kg

DRUGS (3)
  1. XAMIOL [Concomitant]
     Active Substance: BETAMETHASONE DIPROPIONATE\CALCIPOTRIENE HYDRATE
     Indication: PSORIASIS
     Dates: start: 20150914, end: 201606
  2. HUMIRA [Suspect]
     Active Substance: ADALIMUMAB
     Indication: PSORIATIC ARTHROPATHY
     Route: 058
     Dates: start: 20150209, end: 20151228
  3. CLOBEX [Concomitant]
     Active Substance: CLOBETASOL PROPIONATE
     Indication: PSORIASIS
     Dates: start: 20141124, end: 201606

REACTIONS (11)
  - Duodenal ulcer [Recovering/Resolving]
  - Erosive duodenitis [Unknown]
  - Hepatic neoplasm [Unknown]
  - Duodenal operation [Unknown]
  - Hepatic steatosis [Unknown]
  - Streptococcal abscess [Unknown]
  - Haematochezia [Recovering/Resolving]
  - Gastrointestinal haemorrhage [Recovering/Resolving]
  - Post procedural complication [Recovered/Resolved]
  - Liver abscess [Recovering/Resolving]
  - Erosive oesophagitis [Unknown]

NARRATIVE: CASE EVENT DATE: 201511
